FAERS Safety Report 19425785 (Version 2)
Quarter: 2021Q2

REPORT INFORMATION
  Report Type: Report from Study
  Country: None (occurrence: CA)
  Receive Date: 20210617
  Receipt Date: 20210621
  Transmission Date: 20210717
  Serious: Yes (Hospitalization)
  Sender: FDA-Public Use
  Company Number: CA-ABBVIE-21K-028-3953771-00

PATIENT
  Sex: Male

DRUGS (2)
  1. HUMIRA [Suspect]
     Active Substance: ADALIMUMAB
     Route: 058
     Dates: start: 2021
  2. HUMIRA [Suspect]
     Active Substance: ADALIMUMAB
     Indication: CROHN^S DISEASE
     Route: 058
     Dates: start: 20170312, end: 20210514

REACTIONS (8)
  - Gastrointestinal stenosis [Unknown]
  - Antibody test abnormal [Not Recovered/Not Resolved]
  - Inflammation [Unknown]
  - Intestinal obstruction [Recovered/Resolved]
  - Drug level decreased [Not Recovered/Not Resolved]
  - Crohn^s disease [Unknown]
  - Intestinal fibrosis [Unknown]
  - Ophthalmic herpes zoster [Recovered/Resolved]

NARRATIVE: CASE EVENT DATE: 2021
